FAERS Safety Report 6926123-0 (Version None)
Quarter: 2010Q3

REPORT INFORMATION
  Report Type: 
  Country: None (occurrence: None)
  Receive Date: 20100816
  Receipt Date: 20100806
  Transmission Date: 20110219
  Serious: Yes (Life-Threatening)
  Sender: FDA-Public Use
  Company Number: JP-AMGEN-QUU431029

PATIENT
  Age: 67 Year
  Sex: Male

DRUGS (4)
  1. ENBREL [Suspect]
     Indication: RHEUMATOID ARTHRITIS
     Dosage: UNKNOWN
     Route: 058
     Dates: start: 20090401, end: 20100707
  2. ALFAROL [Concomitant]
     Dosage: UNKNOWN
     Route: 048
  3. AZULFIDINE [Concomitant]
     Dosage: UNKNOWN
     Route: 048
  4. FOSAMAX [Concomitant]
     Dosage: 35 MG
     Route: 048

REACTIONS (1)
  - PROSTATE CANCER [None]
